FAERS Safety Report 9646253 (Version 3)
Quarter: 2013Q4

REPORT INFORMATION
  Report Type: Spontaneous
  Country: US (occurrence: US)
  Receive Date: 20131025
  Receipt Date: 20131218
  Transmission Date: 20140711
  Serious: No
  Sender: FDA-Public Use
  Company Number: US-TEVA-440375USA

PATIENT
  Sex: Male

DRUGS (2)
  1. NUVIGIL [Suspect]
     Indication: CIRCADIAN RHYTHM SLEEP DISORDER
  2. HUMIRA [Suspect]

REACTIONS (2)
  - Insomnia [Not Recovered/Not Resolved]
  - Off label use [Unknown]
